FAERS Safety Report 9619038 (Version 2)
Quarter: 2013Q4

REPORT INFORMATION
  Report Type: Spontaneous
  Country: JP (occurrence: JP)
  Receive Date: 20131014
  Receipt Date: 20131023
  Transmission Date: 20140711
  Serious: Yes (Other)
  Sender: FDA-Public Use
  Company Number: JP-PFIZER INC-2013292721

PATIENT
  Age: 65 Year
  Sex: Male

DRUGS (5)
  1. LYRICA [Suspect]
     Dosage: 100 MG, DAILY
     Route: 048
     Dates: start: 20130925, end: 20131008
  2. LYRICA [Suspect]
     Dosage: 150 MG, DAILY
     Route: 048
     Dates: start: 20131009
  3. LOXONIN [Concomitant]
     Dosage: 180 MG, DAILY
     Route: 048
     Dates: start: 20130925
  4. PRORENAL [Concomitant]
     Dosage: 15 UG, DAILY
     Route: 048
     Dates: start: 20130925
  5. MUCOSTA [Concomitant]
     Dosage: 300 MG, DAILY
     Route: 048
     Dates: start: 20130925

REACTIONS (1)
  - Conjunctival haemorrhage [Recovered/Resolved]
